FAERS Safety Report 8986663 (Version 1)
Quarter: 2012Q4

REPORT INFORMATION
  Report Type: Spontaneous
  Country: US (occurrence: None)
  Receive Date: 20121219
  Receipt Date: 20121219
  Transmission Date: 20130627
  Serious: Yes (Hospitalization)
  Sender: FDA-Public Use
  Company Number: None

PATIENT
  Age: 99 Year
  Sex: Female
  Weight: 60 kg

DRUGS (2)
  1. ALPRAZOLAM [Suspect]
     Dosage: 0.25mg q 12hr prn po
     Route: 048
  2. MECLIZINE [Suspect]
     Dosage: 12.5mg q8h po
     Route: 048

REACTIONS (3)
  - Dizziness [None]
  - Fall [None]
  - Subdural haematoma [None]
